FAERS Safety Report 18197453 (Version 1)
Quarter: 2020Q3

REPORT INFORMATION
  Report Type: Report from Study
  Country: IE (occurrence: IE)
  Receive Date: 20200826
  Receipt Date: 20200826
  Transmission Date: 20201103
  Serious: Yes (Other)
  Sender: FDA-Public Use
  Company Number: IE-JNJFOC-20200802162

PATIENT
  Age: 66 Year
  Sex: Male

DRUGS (9)
  1. PREDNISOLONE. [Concomitant]
     Active Substance: PREDNISOLONE
     Route: 050
  2. VITAMIN D3 [Concomitant]
     Active Substance: CHOLECALCIFEROL
     Route: 048
  3. ABIRATERONE ACETATE. [Suspect]
     Active Substance: ABIRATERONE ACETATE
     Indication: PROSTATE CANCER
     Route: 048
     Dates: start: 20200720, end: 202008
  4. XARELTO [Concomitant]
     Active Substance: RIVAROXABAN
     Route: 050
  5. BISOPROLOL [Concomitant]
     Active Substance: BISOPROLOL
     Route: 050
  6. LANSOPRAZOLE. [Concomitant]
     Active Substance: LANSOPRAZOLE
     Route: 050
  7. TELMISARTAN. [Concomitant]
     Active Substance: TELMISARTAN
     Route: 050
  8. EZETIMIBE. [Concomitant]
     Active Substance: EZETIMIBE
     Route: 050
  9. PROSTAP 3 [Concomitant]
     Active Substance: LEUPROLIDE ACETATE
     Route: 050

REACTIONS (3)
  - Palpitations [Recovered/Resolved]
  - Pneumonia [Recovered/Resolved]
  - Dyspnoea [Recovered/Resolved]

NARRATIVE: CASE EVENT DATE: 20200730
